FAERS Safety Report 23743190 (Version 1)
Quarter: 2024Q2

REPORT INFORMATION
  Report Type: Spontaneous
  Country: US (occurrence: None)
  Receive Date: 20240415
  Receipt Date: 20240415
  Transmission Date: 20240715
  Serious: Yes (Life-Threatening, Hospitalization, Other)
  Sender: FDA-Public Use
  Company Number: None

PATIENT
  Age: 23 Year
  Sex: Female

DRUGS (1)
  1. PONVORY [Suspect]
     Active Substance: PONESIMOD
     Indication: Multiple sclerosis
     Dosage: FREQUENCY : DAILY;?

REACTIONS (9)
  - Fall [None]
  - Contusion [None]
  - Bladder disorder [None]
  - Functional gastrointestinal disorder [None]
  - Fatigue [None]
  - Multiple sclerosis relapse [None]
  - Muscular weakness [None]
  - Extra dose administered [None]
  - Therapy interrupted [None]
